FAERS Safety Report 4348944-3 (Version None)
Quarter: 2004Q2

REPORT INFORMATION
  Report Type: 
  Country: None (occurrence: None)
  Receive Date: 20040428
  Receipt Date: 20040414
  Transmission Date: 20050107
  Serious: Yes (Disabling)
  Sender: FDA-Public Use
  Company Number: 200414186GDDC

PATIENT
  Age: 62 Year
  Sex: Female

DRUGS (9)
  1. TAXOTERE [Suspect]
     Indication: BREAST CANCER METASTATIC
     Route: 042
     Dates: start: 20040110, end: 20040220
  2. TAXOTERE [Suspect]
     Indication: METASTASES TO LUNG
     Route: 042
     Dates: start: 20040110, end: 20040220
  3. TAXOTERE [Suspect]
     Indication: METASTASES TO THE MEDIASTINUM
     Route: 042
     Dates: start: 20040110, end: 20040220
  4. DOCETAXEL [Suspect]
     Indication: BREAST CANCER METASTATIC
     Route: 042
     Dates: start: 20040312, end: 20040312
  5. DOCETAXEL [Suspect]
     Indication: METASTASES TO LUNG
     Route: 042
     Dates: start: 20040312, end: 20040312
  6. DOCETAXEL [Suspect]
     Indication: METASTASES TO THE MEDIASTINUM
     Route: 042
     Dates: start: 20040312, end: 20040312
  7. EPIRUBICIN [Suspect]
     Indication: BREAST CANCER METASTATIC
     Route: 042
     Dates: start: 20040110, end: 20040312
  8. EPIRUBICIN [Suspect]
     Indication: METASTASES TO LUNG
     Route: 042
     Dates: start: 20040110, end: 20040312
  9. EPIRUBICIN [Suspect]
     Indication: METASTASES TO THE MEDIASTINUM
     Route: 042
     Dates: start: 20040110, end: 20040312

REACTIONS (4)
  - BLINDNESS UNILATERAL [None]
  - EYELID PTOSIS [None]
  - OPTIC NEUROPATHY [None]
  - VISUAL ACUITY REDUCED [None]
